FAERS Safety Report 5892522-1 (Version None)
Quarter: 2008Q3

REPORT INFORMATION
  Report Type: 
  Country: None (occurrence: None)
  Receive Date: 20080923
  Receipt Date: 20080918
  Transmission Date: 20090109
  Serious: Yes (Death, Life-Threatening, Hospitalization)
  Sender: FDA-Public Use
  Company Number: HU-JNJFOC-20080802398

PATIENT
  Age: 59 Year
  Sex: Female

DRUGS (4)
  1. REMICADE [Suspect]
     Dosage: FOURTH INFUSION
     Route: 042
  2. REMICADE [Suspect]
     Dosage: THIRD INFUSION
     Route: 042
  3. REMICADE [Suspect]
     Indication: PSORIATIC ARTHROPATHY
     Dosage: FIRST AND SECOND INFUSIONS
     Route: 042
  4. MESULID [Suspect]
     Indication: PSORIATIC ARTHROPATHY

REACTIONS (7)
  - AUTOIMMUNE HEPATITIS [None]
  - BRAIN ABSCESS [None]
  - ENDOCARDITIS [None]
  - FUNGAL SEPSIS [None]
  - HEPATIC CIRRHOSIS [None]
  - INFARCTION [None]
  - LOSS OF CONSCIOUSNESS [None]
